FAERS Safety Report 24326504 (Version 1)
Quarter: 2024Q3

REPORT INFORMATION
  Report Type: Spontaneous
  Country: US (occurrence: US)
  Receive Date: 20240917
  Receipt Date: 20240917
  Transmission Date: 20241016
  Serious: No
  Sender: SAREPTA THERAPEUTICS
  Company Number: US-SAREPTA THERAPEUTICS INC.-SRP2023-003889

PATIENT
  Age: 10 Year
  Sex: Male
  Weight: 25.5 kg

DRUGS (2)
  1. VYONDYS 53 [Suspect]
     Active Substance: GOLODIRSEN
     Indication: Product used for unknown indication
     Dosage: 800 MILLIGRAM, WEEKLY
     Route: 042
     Dates: start: 20220425, end: 20230926
  2. VYONDYS 53 [Suspect]
     Active Substance: GOLODIRSEN
     Dosage: 800 MILLIGRAM, WEEKLY
     Route: 042
     Dates: start: 20231009

REACTIONS (2)
  - Product dose omission issue [Unknown]
  - No adverse event [Unknown]

NARRATIVE: CASE EVENT DATE: 20231003
